FAERS Safety Report 12662528 (Version 1)
Quarter: 2016Q3

REPORT INFORMATION
  Report Type: Spontaneous
  Country: FR (occurrence: FR)
  Receive Date: 20160818
  Receipt Date: 20160818
  Transmission Date: 20161109
  Serious: Yes (Hospitalization)
  Sender: FDA-Public Use
  Company Number: FR-ASTRAZENECA-2016SE86989

PATIENT
  Age: 34067 Day
  Sex: Female

DRUGS (8)
  1. ATACAND [Concomitant]
     Active Substance: CANDESARTAN CILEXETIL
  2. BISOPROLOL [Concomitant]
     Active Substance: BISOPROLOL
  3. LASILIX [Concomitant]
     Active Substance: FUROSEMIDE
  4. CEFOTAXIME [Suspect]
     Active Substance: CEFOTAXIME SODIUM
     Indication: PYELONEPHRITIS
     Dosage: PANPHARMA 750 MG DAILY
     Route: 041
     Dates: start: 20160612, end: 20160615
  5. AMOXICILLIN CLAVULANIC ACID [Suspect]
     Active Substance: AMOXICILLIN\CLAVULANIC ACID
     Indication: PYELONEPHRITIS
     Dosage: PANPHARMA  2 G DAILY
     Route: 041
     Dates: start: 20160611, end: 20160611
  6. INEXIUM [Suspect]
     Active Substance: ESOMEPRAZOLE
     Route: 048
     Dates: start: 20160611, end: 20160613
  7. PANTOPRAZOLE [Concomitant]
     Active Substance: PANTOPRAZOLE SODIUM
  8. TARDYFERON [Concomitant]
     Active Substance: FERROUS SULFATE

REACTIONS (3)
  - Pruritus generalised [Recovered/Resolved]
  - Toxic skin eruption [Unknown]
  - Viral rash [Recovered/Resolved]

NARRATIVE: CASE EVENT DATE: 20160612
